FAERS Safety Report 17929839 (Version 1)
Quarter: 2020Q2

REPORT INFORMATION
  Report Type: Spontaneous
  Country: US (occurrence: US)
  Receive Date: 20200623
  Receipt Date: 20200623
  Transmission Date: 20200714
  Serious: No
  Sender: FDA-Public Use
  Company Number: US-ALLERGAN-1944949US

PATIENT
  Sex: Female

DRUGS (5)
  1. SARAFEM [Suspect]
     Active Substance: FLUOXETINE HYDROCHLORIDE
     Indication: ANXIETY
     Dosage: 20 MG
     Route: 048
  2. FLUOXETINE [Concomitant]
     Active Substance: FLUOXETINE HYDROCHLORIDE
     Indication: ANXIETY
  3. APOTHECANNA WITH CANNABIS [Concomitant]
     Indication: PAIN IN EXTREMITY
  4. APOTHECANNA WITH CANNABIS [Concomitant]
     Indication: MUSCULOSKELETAL STIFFNESS
  5. UNSPECIFIED MEDICATIONS FOR ANXIETY [Concomitant]
     Indication: ANXIETY

REACTIONS (2)
  - Off label use [Unknown]
  - Therapeutic response unexpected [Unknown]
